FAERS Safety Report 13520895 (Version 1)
Quarter: 2017Q2

REPORT INFORMATION
  Report Type: Spontaneous
  Country: US (occurrence: US)
  Receive Date: 20170508
  Receipt Date: 20170508
  Transmission Date: 20170830
  Serious: No
  Sender: FDA-Public Use
  Company Number: US-TEVA-696235USA

PATIENT
  Age: 20 Year
  Sex: Female
  Weight: 50.85 kg

DRUGS (1)
  1. AVIANE [Suspect]
     Active Substance: ETHINYL ESTRADIOL\LEVONORGESTREL
     Indication: MENSTRUATION IRREGULAR
     Dosage: 0.10 MG/0.02 MG
     Route: 065
     Dates: start: 201603

REACTIONS (4)
  - Vaginal haemorrhage [Unknown]
  - Menstrual disorder [Unknown]
  - Acne [Unknown]
  - Hormone level abnormal [Unknown]

NARRATIVE: CASE EVENT DATE: 201605
